FAERS Safety Report 21309951 (Version 2)
Quarter: 2022Q3

REPORT INFORMATION
  Report Type: Spontaneous
  Country: AE (occurrence: AE)
  Receive Date: 20220909
  Receipt Date: 20220913
  Transmission Date: 20221027
  Serious: Yes (Hospitalization, Other)
  Sender: FDA-Public Use
  Company Number: None

PATIENT
  Sex: Female

DRUGS (6)
  1. IBUPROFEN [Suspect]
     Active Substance: IBUPROFEN
     Indication: Bartter^s syndrome
     Dosage: UNK
     Route: 065
  2. INDOMETHACIN [Suspect]
     Active Substance: INDOMETHACIN
     Indication: Polyhydramnios
     Dosage: UNK
     Route: 064
  3. INDOMETHACIN [Suspect]
     Active Substance: INDOMETHACIN
     Indication: Bartter^s syndrome
     Dosage: UNK
     Route: 064
  4. INDOMETHACIN [Suspect]
     Active Substance: INDOMETHACIN
     Dosage: UNK; (TAPERED DOSE)
     Route: 064
  5. POTASSIUM CHLORIDE [Concomitant]
     Active Substance: POTASSIUM CHLORIDE
     Indication: Product used for unknown indication
     Dosage: UNK; (SUPPLEMENTS); (GIVEN UP TO 36 MONTHS OF AGE)
     Route: 065
  6. SODIUM [Concomitant]
     Active Substance: SODIUM
     Indication: Product used for unknown indication
     Dosage: UNK
     Route: 065

REACTIONS (2)
  - Necrotising colitis [Recovered/Resolved]
  - Off label use [Unknown]
